FAERS Safety Report 6712985-9 (Version None)
Quarter: 2010Q2

REPORT INFORMATION
  Report Type: 
  Country: None (occurrence: None)
  Receive Date: 20100505
  Receipt Date: 20100505
  Transmission Date: 20101027
  Serious: Yes (Life-Threatening, Other)
  Sender: FDA-Public Use
  Company Number: None

PATIENT
  Age: 40 Year
  Sex: Female
  Weight: 77.1115 kg

DRUGS (1)
  1. SEROQUEL [Suspect]

REACTIONS (7)
  - ARTHRALGIA [None]
  - ASTHENIA [None]
  - FATIGUE [None]
  - HYPERSOMNIA [None]
  - ONYCHOMADESIS [None]
  - TREATMENT FAILURE [None]
  - WEIGHT INCREASED [None]
